FAERS Safety Report 9697737 (Version 1)
Quarter: 2013Q4

REPORT INFORMATION
  Report Type: Spontaneous
  Country: JP (occurrence: JP)
  Receive Date: 20131120
  Receipt Date: 20131120
  Transmission Date: 20140711
  Serious: Yes (Other)
  Sender: FDA-Public Use
  Company Number: JP-ROXANE LABORATORIES, INC.-2013-RO-01834RO

PATIENT
  Age: 10 Year
  Sex: Female
  Weight: 18 kg

DRUGS (1)
  1. LEVETIRACETAM [Suspect]
     Indication: EARLY INFANTILE EPILEPTIC ENCEPHALOPATHY WITH BURST-SUPPRESSION
     Dosage: 250 MG

REACTIONS (2)
  - Hyporesponsive to stimuli [Recovered/Resolved]
  - Akinesia [Recovered/Resolved]
